FAERS Safety Report 6181029-2 (Version None)
Quarter: 2009Q2

REPORT INFORMATION
  Report Type: 
  Country: None (occurrence: None)
  Receive Date: 20090501
  Receipt Date: 20090422
  Transmission Date: 20091009
  Serious: Yes (Hospitalization)
  Sender: FDA-Public Use
  Company Number: 2009002046

PATIENT
  Age: 25 Year
  Sex: Female
  Weight: 60 kg

DRUGS (3)
  1. ACTIQ [Suspect]
     Indication: ABDOMINAL PAIN LOWER
     Dosage: 100 MCG, (100 MCG, 1 IN 1 D) BU
     Route: 002
     Dates: start: 20090101, end: 20090101
  2. GABAPENTIN [Concomitant]
  3. AMITRIPTYLINE HYDROCHLORIDE [Concomitant]

REACTIONS (2)
  - DRUG INTERACTION [None]
  - HYPERSENSITIVITY [None]
